FAERS Safety Report 6926249-1 (Version None)
Quarter: 2010Q3

REPORT INFORMATION
  Report Type: 
  Country: None (occurrence: None)
  Receive Date: 20100816
  Receipt Date: 20100802
  Transmission Date: 20110219
  Serious: Yes (Other)
  Sender: FDA-Public Use
  Company Number: DE-MYLANLABS-2010S1014032

PATIENT
  Age: 16 Year
  Sex: Female
  Weight: 57 kg

DRUGS (2)
  1. AMITRIPTYLINE HCL [Suspect]
     Indication: SUICIDAL IDEATION
     Dosage: UNKNOWN
     Dates: start: 20100615
  2. MIDAZOLAM HCL [Concomitant]
     Route: 042

REACTIONS (5)
  - AGITATION [None]
  - CONVULSION [None]
  - DISORIENTATION [None]
  - LOSS OF CONSCIOUSNESS [None]
  - SPEECH DISORDER [None]
